FAERS Safety Report 7869260-9 (Version None)
Quarter: 2011Q4

REPORT INFORMATION
  Report Type: 
  Country: None (occurrence: None)
  Receive Date: 20111028
  Receipt Date: 20111028
  Transmission Date: 20120403
  Serious: No
  Sender: FDA-Public Use
  Company Number: None

PATIENT
  Age: 82 Year
  Sex: Female
  Weight: 56.246 kg

DRUGS (1)
  1. AZILECT [Suspect]

REACTIONS (1)
  - DRUG INEFFECTIVE [None]
